FAERS Safety Report 21602409 (Version 1)
Quarter: 2022Q4

REPORT INFORMATION
  Report Type: Report from Study
  Country: CA (occurrence: CA)
  Receive Date: 20221116
  Receipt Date: 20221116
  Transmission Date: 20230112
  Serious: Yes (Other)
  Sender: FDA-Public Use
  Company Number: CA-PFIZER INC-202201303307

PATIENT
  Age: 43 Year
  Sex: Female

DRUGS (6)
  1. LORAZEPAM [Suspect]
     Active Substance: LORAZEPAM
     Route: 065
  2. ESCITALOPRAM OXALATE [Suspect]
     Active Substance: ESCITALOPRAM OXALATE
     Route: 065
  3. RABEPRAZOLE SODIUM [Suspect]
     Active Substance: RABEPRAZOLE SODIUM
     Route: 065
  4. CELEBREX [Concomitant]
     Active Substance: CELECOXIB
     Route: 065
  5. CYCLOBENZAPRINE [Concomitant]
     Active Substance: CYCLOBENZAPRINE
     Route: 065
  6. TYLENOL [Concomitant]
     Active Substance: ACETAMINOPHEN
     Route: 065

REACTIONS (5)
  - Brain injury [Unknown]
  - Feeling abnormal [Unknown]
  - Neck injury [Unknown]
  - Skin lesion [Unknown]
  - Urticaria [Unknown]
